FAERS Safety Report 23224122 (Version 1)
Quarter: 2023Q4

REPORT INFORMATION
  Report Type: Spontaneous
  Country: GB (occurrence: GB)
  Receive Date: 20231124
  Receipt Date: 20231124
  Transmission Date: 20240109
  Serious: Yes (Other)
  Sender: FDA-Public Use
  Company Number: None

PATIENT
  Age: 80 Year
  Sex: Female
  Weight: 94 kg

DRUGS (8)
  1. AMLODIPINE [Suspect]
     Active Substance: AMLODIPINE BESYLATE
     Indication: Blood pressure management
     Dosage: 5 MILLIGRAM DAILY; R/V BEFORE NEXT SCRIPT, UNIT DOSE: 5MG, FREQUENCY: ONCE DAILY
     Route: 065
     Dates: start: 20230925
  2. INFLUENZA VIRUS VACCINE [Concomitant]
     Active Substance: INFLUENZA VIRUS VACCINE
     Indication: Influenza immunisation
     Dosage: DURATION: 1 DAYS
     Dates: start: 20230929, end: 20230929
  3. CANDESARTAN [Concomitant]
     Active Substance: CANDESARTAN
     Indication: Product used for unknown indication
     Dosage: 10 MILLIGRAM DAILY; UNIT DOSE: 10MG, FREQUENCY: ONCE DAILY
     Dates: start: 20230613
  4. LATANOPROST [Concomitant]
     Active Substance: LATANOPROST
     Indication: Glaucoma
     Dosage: 1 GTT DAILY; EACH EYE, AT NIGHT, UNIT DOSE: 1GTT
     Dates: start: 20230613
  5. LUFORBEC [Concomitant]
     Indication: Product used for unknown indication
     Dosage: 4 DOSAGE FORMS DAILY; FOR ADULTS OVER 18, UNIT DOSE: 2 DF, FREQUENCY: TWICE DAILY
     Route: 055
     Dates: start: 20230613
  6. ACETAMINOPHEN [Concomitant]
     Active Substance: ACETAMINOPHEN
     Indication: Product used for unknown indication
     Dosage: TAKE 1 OR 2, FREQUENCY: FOUR TIMES DAILY
     Dates: start: 20230613
  7. PRAVASTATIN [Concomitant]
     Active Substance: PRAVASTATIN
     Indication: Product used for unknown indication
     Dosage: 1 DOSAGE FORMS DAILY; AT NIGHT, UNIT DOSE: 1DF
     Dates: start: 20230613
  8. ALBUTEROL [Concomitant]
     Active Substance: ALBUTEROL
     Indication: Product used for unknown indication
     Dosage: ONE OR TWO TO BE TAKEN AS REQU, FREQUENCY: FOUR TIMES DAILY
     Dates: start: 20230613

REACTIONS (1)
  - Joint swelling [Recovering/Resolving]

NARRATIVE: CASE EVENT DATE: 20230925
